FAERS Safety Report 24581397 (Version 1)
Quarter: 2024Q4

REPORT INFORMATION
  Report Type: Spontaneous
  Country: US (occurrence: None)
  Receive Date: 20241105
  Receipt Date: 20241105
  Transmission Date: 20250115
  Serious: Yes (Hospitalization)
  Sender: Public
  Company Number: None

PATIENT
  Age: 51 Year
  Sex: Female

DRUGS (11)
  1. AUSTEDO [Suspect]
     Active Substance: DEUTETRABENAZINE
     Indication: Tardive dyskinesia
     Dosage: 6 MG BID ORAL
     Route: 048
     Dates: start: 20241024, end: 20241104
  2. METHYLPREDNISOLONE [Concomitant]
     Active Substance: METHYLPREDNISOLONE
  3. LAMOTRIGINE [Concomitant]
     Active Substance: LAMOTRIGINE
  4. HYDROXYZINE HYDROCHLORIDE [Concomitant]
     Active Substance: HYDROXYZINE HYDROCHLORIDE
  5. BUSPIRONE [Concomitant]
     Active Substance: BUSPIRONE HYDROCHLORIDE
  6. DESVENLAFAXINE ER SUCC [Concomitant]
  7. TOPIRAMATE [Concomitant]
     Active Substance: TOPIRAMATE
  8. LISINOPRIL [Concomitant]
     Active Substance: LISINOPRIL
  9. GABAPENTIN [Concomitant]
     Active Substance: GABAPENTIN
  10. VRAYLAR [Concomitant]
     Active Substance: CARIPRAZINE
  11. TRAZODONE [Concomitant]
     Active Substance: TRAZODONE HYDROCHLORIDE

REACTIONS (7)
  - Malaise [None]
  - Fall [None]
  - Feeling abnormal [None]
  - Unresponsive to stimuli [None]
  - Tremor [None]
  - Soliloquy [None]
  - Confusional state [None]
